FAERS Safety Report 7050924-4 (Version None)
Quarter: 2010Q4

REPORT INFORMATION
  Report Type: 
  Country: None (occurrence: None)
  Receive Date: 20101019
  Receipt Date: 20101008
  Transmission Date: 20110411
  Serious: Yes (Hospitalization)
  Sender: FDA-Public Use
  Company Number: US-SHIRE-ALL1-2010-04335

PATIENT

DRUGS (7)
  1. DAYTRANA [Suspect]
     Indication: ATTENTION DEFICIT/HYPERACTIVITY DISORDER
     Dosage: 20 MG, 1X/DAY:QD
     Route: 062
     Dates: start: 20100501, end: 20100930
  2. VIVELLE-DOT [Concomitant]
     Indication: OESTROGEN REPLACEMENT THERAPY
     Dosage: UNK, 1X/DAY:QD
     Route: 062
     Dates: start: 20090101, end: 20100930
  3. UNSPECIFIED INHALER [Concomitant]
     Indication: ASTHMA
     Dosage: UNK, AS REQ'D
     Route: 055
  4. VICODIN ES [Concomitant]
     Indication: FIBROMYALGIA
     Dosage: 7.5 MG, AS REQ'D
     Route: 048
     Dates: start: 20060101
  5. LYRICA [Concomitant]
     Indication: FIBROMYALGIA
     Dosage: 200 MG, 2X/DAY:BID
     Route: 048
     Dates: start: 20080101
  6. PRISTIQ [Concomitant]
     Indication: DEPRESSION
     Dosage: 100 MG, 1X/DAY:QD
     Route: 048
     Dates: start: 20100301, end: 20100914
  7. A-TAR [Concomitant]
     Indication: SKIN DISORDER
     Dosage: UNK, UNK
     Route: 062
     Dates: start: 20100420

REACTIONS (10)
  - APPLICATION SITE ERYTHEMA [None]
  - APPLICATION SITE REACTION [None]
  - DRUG ADMINISTERED AT INAPPROPRIATE SITE [None]
  - DRUG EFFECT DECREASED [None]
  - DYSPNOEA [None]
  - EOSINOPHILIC CELLULITIS [None]
  - OFF LABEL USE [None]
  - PRODUCT QUALITY ISSUE [None]
  - PSYCHOTIC DISORDER [None]
  - RASH PAPULAR [None]
